FAERS Safety Report 19057527 (Version 2)
Quarter: 2021Q2

REPORT INFORMATION
  Report Type: Report from Study
  Country: US (occurrence: US)
  Receive Date: 20210324
  Receipt Date: 20210420
  Transmission Date: 20210717
  Serious: No
  Sender: FDA-Public Use
  Company Number: NVSC2021US064222

PATIENT
  Sex: Female

DRUGS (2)
  1. PIQRAY [Suspect]
     Active Substance: ALPELISIB
     Route: 048
  2. PIQRAY [Suspect]
     Active Substance: ALPELISIB
     Indication: PRODUCT USED FOR UNKNOWN INDICATION
     Dosage: UNK (STOPPED AT END OF YEAR)
     Route: 048
     Dates: start: 2019

REACTIONS (5)
  - Nausea [Recovering/Resolving]
  - Cardiac disorder [Unknown]
  - Fatigue [Unknown]
  - Electrocardiogram abnormal [Unknown]
  - Lymphoedema [Unknown]
